FAERS Safety Report 10025658 (Version 2)
Quarter: 2014Q2

REPORT INFORMATION
  Report Type: Spontaneous
  Country: US (occurrence: US)
  Receive Date: 20140320
  Receipt Date: 20140428
  Transmission Date: 20141212
  Serious: No
  Sender: FDA-Public Use
  Company Number: US-TEVA-466424USA

PATIENT
  Sex: Female

DRUGS (1)
  1. NUVIGIL [Suspect]
     Indication: NARCOLEPSY

REACTIONS (3)
  - Drug effect decreased [Recovered/Resolved]
  - Impaired driving ability [Recovered/Resolved]
  - Activities of daily living impaired [Recovered/Resolved]
